FAERS Safety Report 20991067 (Version 1)
Quarter: 2022Q2

REPORT INFORMATION
  Report Type: Spontaneous
  Country: CZ (occurrence: CZ)
  Receive Date: 20220622
  Receipt Date: 20220622
  Transmission Date: 20220721
  Serious: Yes (Life-Threatening, Hospitalization, Other)
  Sender: FDA-Public Use
  Company Number: None

PATIENT
  Age: 66 Year
  Sex: Female
  Weight: 99 kg

DRUGS (2)
  1. PACLITAXEL [Suspect]
     Active Substance: PACLITAXEL
     Indication: Breast cancer
     Dosage: 125MG/M2 = 220 MG WEEKLY , UNIT DOSE : 125 MG , DURATION : 8 DAYS
     Route: 042
     Dates: start: 20220503, end: 20220510
  2. ERYTHROPOIETIN [Concomitant]
     Active Substance: ERYTHROPOIETIN
     Indication: Anaemia
     Dosage: ACCORDING TO HEMOGLOBIN LEVELS, CHECKED AFTER ONE WEEK , UNIT DOSE : 40 IU(INTERNATIONAL UNIT) , DUR
     Route: 058
     Dates: start: 20220510, end: 20220510

REACTIONS (4)
  - Dehydration [Recovered/Resolved]
  - Acute kidney injury [Recovered/Resolved]
  - Presyncope [Recovered/Resolved]
  - Urinary tract infection [Recovered/Resolved]

NARRATIVE: CASE EVENT DATE: 20220513
